FAERS Safety Report 22187286 (Version 2)
Quarter: 2023Q2

REPORT INFORMATION
  Report Type: Spontaneous
  Country: DK (occurrence: DK)
  Receive Date: 20230407
  Receipt Date: 20230412
  Transmission Date: 20230721
  Serious: Yes (Other)
  Sender: FDA-Public Use
  Company Number: None

PATIENT
  Age: 42 Year
  Sex: Male

DRUGS (3)
  1. INFLIXIMAB [Suspect]
     Active Substance: INFLIXIMAB
     Indication: Colitis ulcerative
     Dosage: 400 MG, PRN (DOSAGE:MAX 1 TIME DAILY)
     Route: 042
     Dates: start: 20211012
  2. INFLIXIMAB [Suspect]
     Active Substance: INFLIXIMAB
     Dosage: 400 MG, PRN (DOSAGE:MAX 1 TIME DAILY)
     Route: 042
     Dates: end: 20220517
  3. PREDNISOLONE\SALICYLIC ACID [Concomitant]
     Active Substance: PREDNISOLONE\SALICYLIC ACID
     Indication: Adrenocortical steroid therapy
     Dates: start: 20220426

REACTIONS (2)
  - Rash papular [Recovered/Resolved]
  - Throat tightness [Recovered/Resolved]

NARRATIVE: CASE EVENT DATE: 20220517
